FAERS Safety Report 12175483 (Version 1)
Quarter: 2016Q1

REPORT INFORMATION
  Report Type: Not Available
  Country: None (occurrence: US)
  Receive Date: 20160314
  Receipt Date: 20160314
  Transmission Date: 20160526
  Serious: No
  Sender: FDA-Public Use
  Company Number: US- AKORN-25242

PATIENT
  Age: 55 Year
  Sex: Male

DRUGS (1)
  1. LATANOPROST OPHTHALMIC SOLUTION [Suspect]
     Active Substance: LATANOPROST

REACTIONS (1)
  - Eye injury [Recovered/Resolved]
